FAERS Safety Report 4667887-9 (Version None)
Quarter: 2005Q2

REPORT INFORMATION
  Report Type: 
  Country: None (occurrence: None)
  Receive Date: 20050520
  Receipt Date: 20050509
  Transmission Date: 20051028
  Serious: Yes (Hospitalization)
  Sender: FDA-Public Use
  Company Number: FR-ROCHE-404206

PATIENT
  Age: 28 Year
  Sex: Female

DRUGS (8)
  1. RIVOTRIL [Suspect]
     Indication: BACK PAIN
     Route: 048
     Dates: start: 20050224, end: 20050329
  2. LAROXYL [Suspect]
     Indication: BACK PAIN
     Route: 048
     Dates: start: 20050224, end: 20050329
  3. DEBRIDAT [Suspect]
     Indication: DRUG USE FOR UNKNOWN INDICATION
     Route: 048
     Dates: start: 20050302, end: 20050329
  4. MOPRAL [Suspect]
     Indication: DRUG USE FOR UNKNOWN INDICATION
     Route: 048
     Dates: start: 20050306, end: 20050329
  5. RIFATER [Concomitant]
     Route: 048
     Dates: start: 20050301
  6. MYAMBUTOL [Concomitant]
     Route: 048
     Dates: start: 20050301, end: 20050323
  7. LOVENOX [Concomitant]
     Dates: start: 20050224, end: 20050329
  8. SPASFON [Concomitant]
     Dates: start: 20050303, end: 20050329

REACTIONS (2)
  - LEUKOPENIA [None]
  - NEUTROPENIA [None]
